FAERS Safety Report 22530453 (Version 47)
Quarter: 2025Q1

REPORT INFORMATION
  Report Type: Report from Study
  Country: CN (occurrence: CN)
  Receive Date: 20230607
  Receipt Date: 20250321
  Transmission Date: 20250409
  Serious: Yes (Life-Threatening)
  Sender: SANOFI AVENTIS
  Company Number: CN-SA-SAC20230320001637

PATIENT
  Age: 68 Year
  Sex: Female
  Weight: 66.5 kg

DRUGS (181)
  1. ISATUXIMAB [Suspect]
     Active Substance: ISATUXIMAB
     Indication: Plasma cell myeloma refractory
     Route: 041
     Dates: start: 20230321, end: 20230321
  2. ISATUXIMAB [Suspect]
     Active Substance: ISATUXIMAB
     Route: 041
     Dates: start: 20230328, end: 20230328
  3. ISATUXIMAB [Suspect]
     Active Substance: ISATUXIMAB
     Route: 041
     Dates: start: 20230404, end: 20230404
  4. ISATUXIMAB [Suspect]
     Active Substance: ISATUXIMAB
     Route: 041
     Dates: start: 20230411, end: 20230411
  5. ISATUXIMAB [Suspect]
     Active Substance: ISATUXIMAB
     Route: 041
     Dates: start: 20230418, end: 20230418
  6. ISATUXIMAB [Suspect]
     Active Substance: ISATUXIMAB
     Route: 041
     Dates: start: 20230502, end: 20230502
  7. ISATUXIMAB [Suspect]
     Active Substance: ISATUXIMAB
     Route: 041
     Dates: start: 20230516, end: 20230516
  8. ISATUXIMAB [Suspect]
     Active Substance: ISATUXIMAB
     Route: 041
     Dates: start: 20230530, end: 20230530
  9. ISATUXIMAB [Suspect]
     Active Substance: ISATUXIMAB
     Route: 041
     Dates: start: 20230613, end: 20230613
  10. ISATUXIMAB [Suspect]
     Active Substance: ISATUXIMAB
     Route: 041
     Dates: start: 20230627, end: 20230627
  11. ISATUXIMAB [Suspect]
     Active Substance: ISATUXIMAB
     Route: 041
     Dates: start: 20230711, end: 20230711
  12. ISATUXIMAB [Suspect]
     Active Substance: ISATUXIMAB
     Route: 041
     Dates: start: 20230725, end: 20230725
  13. ISATUXIMAB [Suspect]
     Active Substance: ISATUXIMAB
     Route: 041
     Dates: start: 20230808, end: 20230808
  14. ISATUXIMAB [Suspect]
     Active Substance: ISATUXIMAB
     Route: 041
     Dates: start: 20230822, end: 20230822
  15. ISATUXIMAB [Suspect]
     Active Substance: ISATUXIMAB
     Route: 041
     Dates: start: 20230905, end: 20230905
  16. ISATUXIMAB [Suspect]
     Active Substance: ISATUXIMAB
     Route: 041
     Dates: start: 20231128, end: 20231128
  17. ISATUXIMAB [Suspect]
     Active Substance: ISATUXIMAB
     Route: 041
     Dates: start: 20231212, end: 20231212
  18. ISATUXIMAB [Suspect]
     Active Substance: ISATUXIMAB
     Route: 041
     Dates: start: 20231226, end: 20231226
  19. ISATUXIMAB [Suspect]
     Active Substance: ISATUXIMAB
     Route: 041
     Dates: start: 20240109, end: 20240109
  20. ISATUXIMAB [Suspect]
     Active Substance: ISATUXIMAB
     Route: 041
     Dates: start: 20240220, end: 20240220
  21. ISATUXIMAB [Suspect]
     Active Substance: ISATUXIMAB
     Route: 041
     Dates: start: 20240206, end: 20240206
  22. ISATUXIMAB [Suspect]
     Active Substance: ISATUXIMAB
     Route: 041
     Dates: start: 20231114, end: 20240206
  23. ISATUXIMAB [Suspect]
     Active Substance: ISATUXIMAB
     Route: 042
     Dates: start: 20240123, end: 20240123
  24. ISATUXIMAB [Suspect]
     Active Substance: ISATUXIMAB
     Dates: start: 20230321
  25. ISATUXIMAB [Suspect]
     Active Substance: ISATUXIMAB
     Dates: start: 20230321
  26. ISATUXIMAB [Suspect]
     Active Substance: ISATUXIMAB
     Dates: start: 20230321
  27. ISATUXIMAB [Suspect]
     Active Substance: ISATUXIMAB
     Route: 042
     Dates: start: 20240305, end: 20240305
  28. ISATUXIMAB [Suspect]
     Active Substance: ISATUXIMAB
     Route: 041
     Dates: start: 20230919, end: 20230919
  29. ISATUXIMAB [Suspect]
     Active Substance: ISATUXIMAB
     Route: 041
     Dates: start: 20231003, end: 20231003
  30. POMALIDOMIDE [Suspect]
     Active Substance: POMALIDOMIDE
     Indication: Plasma cell myeloma refractory
     Route: 048
     Dates: start: 20230321, end: 20230410
  31. POMALIDOMIDE [Suspect]
     Active Substance: POMALIDOMIDE
     Route: 048
     Dates: start: 20230418, end: 20230501
  32. POMALIDOMIDE [Suspect]
     Active Substance: POMALIDOMIDE
     Route: 048
     Dates: start: 20230516, end: 20230605
  33. POMALIDOMIDE [Suspect]
     Active Substance: POMALIDOMIDE
     Route: 048
     Dates: start: 20230613, end: 20230703
  34. POMALIDOMIDE [Suspect]
     Active Substance: POMALIDOMIDE
     Route: 048
     Dates: start: 20230711, end: 20230731
  35. POMALIDOMIDE [Suspect]
     Active Substance: POMALIDOMIDE
     Route: 048
     Dates: start: 20230808, end: 20230828
  36. POMALIDOMIDE [Suspect]
     Active Substance: POMALIDOMIDE
     Route: 048
     Dates: start: 20230905, end: 20230925
  37. POMALIDOMIDE [Suspect]
     Active Substance: POMALIDOMIDE
     Route: 048
     Dates: start: 20231102, end: 20231120
  38. POMALIDOMIDE [Suspect]
     Active Substance: POMALIDOMIDE
     Route: 048
     Dates: start: 20231128, end: 20231218
  39. POMALIDOMIDE [Suspect]
     Active Substance: POMALIDOMIDE
     Route: 048
     Dates: start: 20231226, end: 20240115
  40. POMALIDOMIDE [Suspect]
     Active Substance: POMALIDOMIDE
     Route: 048
     Dates: start: 20240123, end: 20240212
  41. POMALIDOMIDE [Suspect]
     Active Substance: POMALIDOMIDE
     Route: 048
     Dates: start: 20231003, end: 20231023
  42. DEXAMETHASONE [Suspect]
     Active Substance: DEXAMETHASONE
     Indication: Plasma cell myeloma refractory
     Route: 042
     Dates: start: 20230321, end: 20230321
  43. DEXAMETHASONE [Suspect]
     Active Substance: DEXAMETHASONE
     Route: 042
     Dates: start: 20230328, end: 20230328
  44. DEXAMETHASONE [Suspect]
     Active Substance: DEXAMETHASONE
     Route: 042
     Dates: start: 20230404, end: 20230404
  45. DEXAMETHASONE [Suspect]
     Active Substance: DEXAMETHASONE
     Route: 042
     Dates: start: 20230411, end: 20230411
  46. DEXAMETHASONE [Suspect]
     Active Substance: DEXAMETHASONE
     Route: 042
     Dates: start: 20230418, end: 20230418
  47. DEXAMETHASONE [Suspect]
     Active Substance: DEXAMETHASONE
     Route: 048
     Dates: start: 20230425, end: 20230425
  48. DEXAMETHASONE [Suspect]
     Active Substance: DEXAMETHASONE
     Route: 042
     Dates: start: 20230502, end: 20230502
  49. DEXAMETHASONE [Suspect]
     Active Substance: DEXAMETHASONE
     Route: 048
     Dates: start: 20230509, end: 20230509
  50. DEXAMETHASONE [Suspect]
     Active Substance: DEXAMETHASONE
     Route: 048
     Dates: start: 20230606, end: 20230606
  51. DEXAMETHASONE [Suspect]
     Active Substance: DEXAMETHASONE
     Route: 042
     Dates: start: 20230516, end: 20230516
  52. DEXAMETHASONE [Suspect]
     Active Substance: DEXAMETHASONE
     Route: 048
     Dates: start: 20230523, end: 20230523
  53. DEXAMETHASONE [Suspect]
     Active Substance: DEXAMETHASONE
     Route: 042
     Dates: start: 20230530, end: 20230530
  54. DEXAMETHASONE [Suspect]
     Active Substance: DEXAMETHASONE
     Route: 042
     Dates: start: 20230613, end: 20230613
  55. DEXAMETHASONE [Suspect]
     Active Substance: DEXAMETHASONE
     Route: 042
     Dates: start: 20230620, end: 20230620
  56. DEXAMETHASONE [Suspect]
     Active Substance: DEXAMETHASONE
     Route: 042
     Dates: start: 20230627, end: 20230627
  57. DEXAMETHASONE [Suspect]
     Active Substance: DEXAMETHASONE
     Route: 042
     Dates: start: 20230704, end: 20230704
  58. DEXAMETHASONE [Suspect]
     Active Substance: DEXAMETHASONE
     Route: 042
     Dates: start: 20230711, end: 20230711
  59. DEXAMETHASONE [Suspect]
     Active Substance: DEXAMETHASONE
     Route: 048
     Dates: start: 20230718, end: 20230718
  60. DEXAMETHASONE [Suspect]
     Active Substance: DEXAMETHASONE
     Route: 042
     Dates: start: 20230725, end: 20230725
  61. DEXAMETHASONE [Suspect]
     Active Substance: DEXAMETHASONE
     Route: 048
     Dates: start: 20230801, end: 20230801
  62. DEXAMETHASONE [Suspect]
     Active Substance: DEXAMETHASONE
     Route: 042
     Dates: start: 20230808, end: 20230808
  63. DEXAMETHASONE [Suspect]
     Active Substance: DEXAMETHASONE
     Route: 048
     Dates: start: 20230815, end: 20230815
  64. DEXAMETHASONE [Suspect]
     Active Substance: DEXAMETHASONE
     Route: 042
     Dates: start: 20230822, end: 20230822
  65. DEXAMETHASONE [Suspect]
     Active Substance: DEXAMETHASONE
     Route: 048
     Dates: start: 20230829, end: 20230829
  66. DEXAMETHASONE [Suspect]
     Active Substance: DEXAMETHASONE
     Route: 048
     Dates: start: 20230905, end: 20230905
  67. DEXAMETHASONE [Suspect]
     Active Substance: DEXAMETHASONE
     Route: 048
     Dates: start: 20230912, end: 20230912
  68. DEXAMETHASONE [Suspect]
     Active Substance: DEXAMETHASONE
     Route: 048
     Dates: start: 20230919, end: 20230919
  69. DEXAMETHASONE [Suspect]
     Active Substance: DEXAMETHASONE
     Route: 048
     Dates: start: 20230926, end: 20230926
  70. DEXAMETHASONE [Suspect]
     Active Substance: DEXAMETHASONE
     Route: 048
     Dates: start: 20231107, end: 20231107
  71. DEXAMETHASONE [Suspect]
     Active Substance: DEXAMETHASONE
     Route: 042
     Dates: start: 20231114, end: 20231114
  72. DEXAMETHASONE [Suspect]
     Active Substance: DEXAMETHASONE
     Route: 048
     Dates: start: 20231121, end: 20231121
  73. DEXAMETHASONE [Suspect]
     Active Substance: DEXAMETHASONE
     Route: 042
     Dates: start: 20231128, end: 20231128
  74. DEXAMETHASONE [Suspect]
     Active Substance: DEXAMETHASONE
     Route: 048
     Dates: start: 20231205, end: 20231205
  75. DEXAMETHASONE [Suspect]
     Active Substance: DEXAMETHASONE
     Route: 042
     Dates: start: 20231212, end: 20231212
  76. DEXAMETHASONE [Suspect]
     Active Substance: DEXAMETHASONE
     Route: 048
     Dates: start: 20231219, end: 20231219
  77. DEXAMETHASONE [Suspect]
     Active Substance: DEXAMETHASONE
     Route: 042
     Dates: start: 20231226, end: 20231226
  78. DEXAMETHASONE [Suspect]
     Active Substance: DEXAMETHASONE
     Route: 048
     Dates: start: 20240102, end: 20240102
  79. DEXAMETHASONE [Suspect]
     Active Substance: DEXAMETHASONE
     Route: 042
     Dates: start: 20240109, end: 20240109
  80. DEXAMETHASONE [Suspect]
     Active Substance: DEXAMETHASONE
     Route: 048
     Dates: start: 20240116, end: 20240116
  81. DEXAMETHASONE [Suspect]
     Active Substance: DEXAMETHASONE
     Route: 042
     Dates: start: 20240123, end: 20240123
  82. DEXAMETHASONE [Suspect]
     Active Substance: DEXAMETHASONE
     Route: 048
     Dates: start: 20240130, end: 20240130
  83. DEXAMETHASONE [Suspect]
     Active Substance: DEXAMETHASONE
     Route: 042
     Dates: start: 20240206, end: 20240206
  84. DEXAMETHASONE [Suspect]
     Active Substance: DEXAMETHASONE
     Route: 048
     Dates: start: 20240213, end: 20240213
  85. DEXAMETHASONE [Suspect]
     Active Substance: DEXAMETHASONE
     Route: 042
     Dates: start: 20231003, end: 20231003
  86. DEXAMETHASONE [Suspect]
     Active Substance: DEXAMETHASONE
     Route: 048
     Dates: start: 20231010, end: 20231010
  87. ACETAMINOPHEN [Concomitant]
     Active Substance: ACETAMINOPHEN
     Indication: Prophylaxis
     Route: 048
     Dates: start: 20230321, end: 20230321
  88. ACETAMINOPHEN [Concomitant]
     Active Substance: ACETAMINOPHEN
     Route: 048
     Dates: start: 20230328, end: 20230328
  89. ACETAMINOPHEN [Concomitant]
     Active Substance: ACETAMINOPHEN
     Route: 048
     Dates: start: 20230404, end: 20230404
  90. ACETAMINOPHEN [Concomitant]
     Active Substance: ACETAMINOPHEN
     Route: 048
     Dates: start: 20230411, end: 20230411
  91. PANTOPRAZOLE SODIUM ANHYDROUS [Concomitant]
     Active Substance: PANTOPRAZOLE SODIUM ANHYDROUS
     Indication: Prophylaxis
     Route: 048
     Dates: start: 20230321, end: 20230321
  92. PANTOPRAZOLE SODIUM ANHYDROUS [Concomitant]
     Active Substance: PANTOPRAZOLE SODIUM ANHYDROUS
     Route: 048
     Dates: start: 20230328, end: 20230328
  93. PANTOPRAZOLE SODIUM ANHYDROUS [Concomitant]
     Active Substance: PANTOPRAZOLE SODIUM ANHYDROUS
     Route: 048
     Dates: start: 20230404, end: 20230404
  94. PANTOPRAZOLE SODIUM ANHYDROUS [Concomitant]
     Active Substance: PANTOPRAZOLE SODIUM ANHYDROUS
     Route: 048
     Dates: start: 20230411, end: 20230411
  95. PANTOPRAZOLE SODIUM ANHYDROUS [Concomitant]
     Active Substance: PANTOPRAZOLE SODIUM ANHYDROUS
     Route: 048
     Dates: start: 20230418, end: 20230418
  96. PANTOPRAZOLE SODIUM ANHYDROUS [Concomitant]
     Active Substance: PANTOPRAZOLE SODIUM ANHYDROUS
     Route: 048
     Dates: start: 20230502, end: 20230502
  97. PANTOPRAZOLE SODIUM ANHYDROUS [Concomitant]
     Active Substance: PANTOPRAZOLE SODIUM ANHYDROUS
     Route: 048
     Dates: start: 20230516, end: 20230516
  98. PANTOPRAZOLE SODIUM ANHYDROUS [Concomitant]
     Active Substance: PANTOPRAZOLE SODIUM ANHYDROUS
     Route: 048
     Dates: start: 20230530, end: 20230530
  99. PANTOPRAZOLE SODIUM ANHYDROUS [Concomitant]
     Active Substance: PANTOPRAZOLE SODIUM ANHYDROUS
     Route: 048
     Dates: start: 20230613, end: 20230613
  100. PANTOPRAZOLE SODIUM ANHYDROUS [Concomitant]
     Active Substance: PANTOPRAZOLE SODIUM ANHYDROUS
     Route: 048
     Dates: start: 20230627, end: 20230627
  101. PANTOPRAZOLE SODIUM ANHYDROUS [Concomitant]
     Active Substance: PANTOPRAZOLE SODIUM ANHYDROUS
     Route: 048
     Dates: start: 20230530, end: 20230530
  102. PANTOPRAZOLE SODIUM ANHYDROUS [Concomitant]
     Active Substance: PANTOPRAZOLE SODIUM ANHYDROUS
     Route: 048
     Dates: start: 20230613, end: 20230613
  103. PANTOPRAZOLE SODIUM ANHYDROUS [Concomitant]
     Active Substance: PANTOPRAZOLE SODIUM ANHYDROUS
     Route: 048
     Dates: start: 20230627, end: 20230627
  104. PANTOPRAZOLE SODIUM ANHYDROUS [Concomitant]
     Active Substance: PANTOPRAZOLE SODIUM ANHYDROUS
     Route: 048
     Dates: start: 20230711, end: 20230711
  105. PANTOPRAZOLE SODIUM ANHYDROUS [Concomitant]
     Active Substance: PANTOPRAZOLE SODIUM ANHYDROUS
     Route: 048
     Dates: start: 20230725, end: 20230725
  106. PANTOPRAZOLE SODIUM ANHYDROUS [Concomitant]
     Active Substance: PANTOPRAZOLE SODIUM ANHYDROUS
     Route: 048
     Dates: start: 20230808, end: 20230808
  107. PANTOPRAZOLE SODIUM ANHYDROUS [Concomitant]
     Active Substance: PANTOPRAZOLE SODIUM ANHYDROUS
     Route: 048
     Dates: start: 20230905, end: 20230905
  108. PANTOPRAZOLE SODIUM ANHYDROUS [Concomitant]
     Active Substance: PANTOPRAZOLE SODIUM ANHYDROUS
     Route: 048
     Dates: start: 20231003, end: 20231003
  109. PANTOPRAZOLE SODIUM ANHYDROUS [Concomitant]
     Active Substance: PANTOPRAZOLE SODIUM ANHYDROUS
     Route: 048
     Dates: start: 20231114, end: 20231114
  110. PANTOPRAZOLE SODIUM ANHYDROUS [Concomitant]
     Active Substance: PANTOPRAZOLE SODIUM ANHYDROUS
     Route: 048
     Dates: start: 20231128, end: 20231128
  111. PANTOPRAZOLE SODIUM ANHYDROUS [Concomitant]
     Active Substance: PANTOPRAZOLE SODIUM ANHYDROUS
     Route: 048
     Dates: start: 20231212, end: 20231212
  112. PANTOPRAZOLE SODIUM ANHYDROUS [Concomitant]
     Active Substance: PANTOPRAZOLE SODIUM ANHYDROUS
     Route: 048
     Dates: start: 20231226, end: 20231226
  113. PANTOPRAZOLE SODIUM ANHYDROUS [Concomitant]
     Active Substance: PANTOPRAZOLE SODIUM ANHYDROUS
     Route: 048
     Dates: start: 20240109, end: 20240109
  114. PANTOPRAZOLE SODIUM ANHYDROUS [Concomitant]
     Active Substance: PANTOPRAZOLE SODIUM ANHYDROUS
     Route: 048
     Dates: start: 20240123, end: 20240123
  115. PANTOPRAZOLE SODIUM ANHYDROUS [Concomitant]
     Active Substance: PANTOPRAZOLE SODIUM ANHYDROUS
     Route: 048
     Dates: start: 20240206, end: 20240206
  116. PANTOPRAZOLE SODIUM ANHYDROUS [Concomitant]
     Active Substance: PANTOPRAZOLE SODIUM ANHYDROUS
     Route: 048
     Dates: start: 20240220, end: 20240220
  117. MONTELUKAST SODIUM [Concomitant]
     Active Substance: MONTELUKAST SODIUM
     Indication: Prophylaxis
     Route: 048
     Dates: start: 20230321, end: 20230321
  118. MONTELUKAST SODIUM [Concomitant]
     Active Substance: MONTELUKAST SODIUM
     Route: 048
     Dates: start: 20230328, end: 20230328
  119. MONTELUKAST SODIUM [Concomitant]
     Active Substance: MONTELUKAST SODIUM
     Route: 048
     Dates: start: 20230404, end: 20230404
  120. MONTELUKAST SODIUM [Concomitant]
     Active Substance: MONTELUKAST SODIUM
     Route: 048
     Dates: start: 20230411, end: 20230411
  121. DIPHENHYDRAMINE HYDROCHLORIDE [Concomitant]
     Active Substance: DIPHENHYDRAMINE HYDROCHLORIDE
     Indication: Prophylaxis
     Route: 030
     Dates: start: 20230321, end: 20230321
  122. DIPHENHYDRAMINE HYDROCHLORIDE [Concomitant]
     Active Substance: DIPHENHYDRAMINE HYDROCHLORIDE
     Route: 030
     Dates: start: 20230328, end: 20230328
  123. DIPHENHYDRAMINE HYDROCHLORIDE [Concomitant]
     Active Substance: DIPHENHYDRAMINE HYDROCHLORIDE
     Route: 030
     Dates: start: 20230404, end: 20230404
  124. DIPHENHYDRAMINE HYDROCHLORIDE [Concomitant]
     Active Substance: DIPHENHYDRAMINE HYDROCHLORIDE
     Route: 030
     Dates: start: 20230411, end: 20230411
  125. DIPHENHYDRAMINE HYDROCHLORIDE [Concomitant]
     Active Substance: DIPHENHYDRAMINE HYDROCHLORIDE
  126. GLUCOSE [ASCORBIC ACID;GLUCOSE] [Concomitant]
     Indication: Prophylaxis
     Route: 041
     Dates: start: 20230328, end: 20230328
  127. LIDOCAINE HYDROCHLORIDE [Concomitant]
     Active Substance: LIDOCAINE HYDROCHLORIDE
     Indication: Prophylaxis
     Route: 058
     Dates: start: 20230417, end: 20230417
  128. LIDOCAINE HYDROCHLORIDE [Concomitant]
     Active Substance: LIDOCAINE HYDROCHLORIDE
     Route: 058
     Dates: start: 20230612, end: 20230612
  129. LIDOCAINE HYDROCHLORIDE [Concomitant]
     Active Substance: LIDOCAINE HYDROCHLORIDE
     Route: 058
     Dates: start: 20230905, end: 20230905
  130. LIDOCAINE HYDROCHLORIDE [Concomitant]
     Active Substance: LIDOCAINE HYDROCHLORIDE
     Route: 058
     Dates: start: 20231128, end: 20231128
  131. LIDOCAINE HYDROCHLORIDE [Concomitant]
     Active Substance: LIDOCAINE HYDROCHLORIDE
     Route: 058
     Dates: start: 20240220, end: 20240220
  132. LACTULOSE [Concomitant]
     Active Substance: LACTULOSE
     Route: 048
     Dates: start: 20230403, end: 20230403
  133. LACTULOSE [Concomitant]
     Active Substance: LACTULOSE
     Route: 048
     Dates: start: 20230412, end: 20230412
  134. LEVOFLOXACIN [Concomitant]
     Active Substance: LEVOFLOXACIN
     Route: 048
     Dates: start: 20230403, end: 20230418
  135. GRANULOCYTE COLONY-STIMULATING FACTOR NOS [Concomitant]
     Active Substance: GRANULOCYTE COLONY-STIMULATING FACTOR NOS
     Route: 058
     Dates: start: 20230319, end: 20230321
  136. GRANULOCYTE COLONY-STIMULATING FACTOR NOS [Concomitant]
     Active Substance: GRANULOCYTE COLONY-STIMULATING FACTOR NOS
     Route: 058
     Dates: start: 20230324, end: 20230325
  137. GRANULOCYTE COLONY-STIMULATING FACTOR NOS [Concomitant]
     Active Substance: GRANULOCYTE COLONY-STIMULATING FACTOR NOS
     Route: 058
     Dates: start: 20230331, end: 20230410
  138. GRANULOCYTE COLONY-STIMULATING FACTOR NOS [Concomitant]
     Active Substance: GRANULOCYTE COLONY-STIMULATING FACTOR NOS
     Route: 058
     Dates: start: 20230412, end: 20230414
  139. GRANULOCYTE COLONY-STIMULATING FACTOR NOS [Concomitant]
     Active Substance: GRANULOCYTE COLONY-STIMULATING FACTOR NOS
     Route: 058
     Dates: start: 20230417, end: 20230419
  140. GRANULOCYTE COLONY-STIMULATING FACTOR NOS [Concomitant]
     Active Substance: GRANULOCYTE COLONY-STIMULATING FACTOR NOS
     Route: 058
     Dates: start: 20230501, end: 20230502
  141. GRANULOCYTE COLONY-STIMULATING FACTOR NOS [Concomitant]
     Active Substance: GRANULOCYTE COLONY-STIMULATING FACTOR NOS
     Route: 058
     Dates: start: 20230516, end: 20230516
  142. GRANULOCYTE COLONY-STIMULATING FACTOR NOS [Concomitant]
     Active Substance: GRANULOCYTE COLONY-STIMULATING FACTOR NOS
     Route: 058
     Dates: start: 20230529, end: 20230530
  143. GRANULOCYTE COLONY-STIMULATING FACTOR NOS [Concomitant]
     Active Substance: GRANULOCYTE COLONY-STIMULATING FACTOR NOS
     Route: 058
     Dates: start: 20230612, end: 20230613
  144. GRANULOCYTE COLONY-STIMULATING FACTOR NOS [Concomitant]
     Active Substance: GRANULOCYTE COLONY-STIMULATING FACTOR NOS
     Route: 058
     Dates: start: 20230711, end: 20230711
  145. GRANULOCYTE COLONY-STIMULATING FACTOR NOS [Concomitant]
     Active Substance: GRANULOCYTE COLONY-STIMULATING FACTOR NOS
     Route: 058
     Dates: start: 20230724, end: 20230725
  146. GRANULOCYTE COLONY-STIMULATING FACTOR NOS [Concomitant]
     Active Substance: GRANULOCYTE COLONY-STIMULATING FACTOR NOS
     Route: 058
     Dates: start: 20230808, end: 20230808
  147. GRANULOCYTE COLONY-STIMULATING FACTOR NOS [Concomitant]
     Active Substance: GRANULOCYTE COLONY-STIMULATING FACTOR NOS
     Route: 058
     Dates: start: 20230822, end: 20230822
  148. GRANULOCYTE COLONY-STIMULATING FACTOR NOS [Concomitant]
     Active Substance: GRANULOCYTE COLONY-STIMULATING FACTOR NOS
     Route: 058
     Dates: start: 20230721, end: 20230721
  149. GRANULOCYTE COLONY-STIMULATING FACTOR NOS [Concomitant]
     Active Substance: GRANULOCYTE COLONY-STIMULATING FACTOR NOS
     Route: 058
     Dates: start: 20230731, end: 20230731
  150. GRANULOCYTE COLONY-STIMULATING FACTOR NOS [Concomitant]
     Active Substance: GRANULOCYTE COLONY-STIMULATING FACTOR NOS
     Route: 058
     Dates: start: 20230801, end: 20230801
  151. GRANULOCYTE COLONY-STIMULATING FACTOR NOS [Concomitant]
     Active Substance: GRANULOCYTE COLONY-STIMULATING FACTOR NOS
     Route: 058
     Dates: start: 20230814, end: 20230814
  152. GRANULOCYTE COLONY-STIMULATING FACTOR NOS [Concomitant]
     Active Substance: GRANULOCYTE COLONY-STIMULATING FACTOR NOS
     Route: 058
     Dates: start: 20230815, end: 20230815
  153. GRANULOCYTE COLONY-STIMULATING FACTOR NOS [Concomitant]
     Active Substance: GRANULOCYTE COLONY-STIMULATING FACTOR NOS
     Route: 058
     Dates: start: 20230925, end: 20230925
  154. GRANULOCYTE COLONY-STIMULATING FACTOR NOS [Concomitant]
     Active Substance: GRANULOCYTE COLONY-STIMULATING FACTOR NOS
     Route: 058
     Dates: start: 20240116, end: 20240117
  155. GRANULOCYTE COLONY-STIMULATING FACTOR NOS [Concomitant]
     Active Substance: GRANULOCYTE COLONY-STIMULATING FACTOR NOS
     Route: 058
     Dates: start: 20240304, end: 20240304
  156. GLYCERIN [Concomitant]
     Active Substance: GLYCERIN
     Dates: start: 20230403, end: 20230404
  157. GLYCERIN [Concomitant]
     Active Substance: GLYCERIN
     Dates: start: 20230412, end: 20230412
  158. RECOMBINANT HUMAN THROMBOPOIETIN [Concomitant]
     Active Substance: RECOMBINANT HUMAN THROMBOPOIETIN
     Route: 058
     Dates: start: 20230529, end: 20230530
  159. AVATROMBOPAG [Concomitant]
     Active Substance: AVATROMBOPAG
     Route: 048
     Dates: start: 20230530, end: 20230608
  160. AVATROMBOPAG [Concomitant]
     Active Substance: AVATROMBOPAG
     Route: 048
     Dates: start: 20230822, end: 20230910
  161. METOPROLOL TARTRATE ACCORD [Concomitant]
     Route: 048
     Dates: start: 20230612, end: 20240319
  162. METOPROLOL TARTRATE ACCORD [Concomitant]
     Route: 048
     Dates: start: 20231128, end: 20240319
  163. OXYGEN [Concomitant]
     Active Substance: OXYGEN
     Route: 055
     Dates: start: 20230724, end: 20230725
  164. PEGYLATED RECOMBINANT HUMAN GRANULOCYTE COLONY STIMULATING FACTOR [Concomitant]
     Route: 058
     Dates: start: 20230821, end: 20230821
  165. PEGYLATED RECOMBINANT HUMAN GRANULOCYTE COLONY STIMULATING FACTOR [Concomitant]
     Route: 058
     Dates: start: 20230905, end: 20230905
  166. PEGYLATED RECOMBINANT HUMAN GRANULOCYTE COLONY STIMULATING FACTOR [Concomitant]
     Route: 058
     Dates: start: 20231003, end: 20231003
  167. PEGYLATED RECOMBINANT HUMAN GRANULOCYTE COLONY STIMULATING FACTOR [Concomitant]
     Route: 058
     Dates: start: 20231017, end: 20231017
  168. PEGYLATED RECOMBINANT HUMAN GRANULOCYTE COLONY STIMULATING FACTOR [Concomitant]
     Route: 058
     Dates: start: 20231211, end: 20231211
  169. PEGYLATED RECOMBINANT HUMAN GRANULOCYTE COLONY STIMULATING FACTOR [Concomitant]
     Route: 058
     Dates: start: 20231226, end: 20231226
  170. PEGYLATED RECOMBINANT HUMAN GRANULOCYTE COLONY STIMULATING FACTOR [Concomitant]
     Route: 058
     Dates: start: 20240123, end: 20240123
  171. PEGYLATED RECOMBINANT HUMAN GRANULOCYTE COLONY STIMULATING FACTOR [Concomitant]
     Route: 058
     Dates: start: 20240220, end: 20240220
  172. PEGYLATED RECOMBINANT HUMAN GRANULOCYTE COLONY STIMULATING FACTOR [Concomitant]
     Route: 058
     Dates: start: 20240205, end: 20240205
  173. PHOSPHOLIPID [Concomitant]
     Active Substance: PHOSPHOLIPID
     Dates: start: 20231113, end: 20231113
  174. PHOSPHOLIPID [Concomitant]
     Active Substance: PHOSPHOLIPID
     Dates: start: 20231114, end: 20231122
  175. PHOSPHOLIPID [Concomitant]
     Active Substance: PHOSPHOLIPID
     Dates: start: 20231113, end: 20231113
  176. PHOSPHOLIPID [Concomitant]
     Active Substance: PHOSPHOLIPID
     Dates: start: 20231114, end: 20231114
  177. ASPIRIN [Concomitant]
     Active Substance: ASPIRIN
     Indication: Prophylaxis
     Route: 048
     Dates: start: 20231226
  178. ROSUVASTATIN CALCIUM [Concomitant]
     Active Substance: ROSUVASTATIN CALCIUM
     Route: 048
     Dates: start: 20231228
  179. NIFEDIPINE [Concomitant]
     Active Substance: NIFEDIPINE
     Route: 048
     Dates: start: 2018, end: 20240806
  180. THYMALFASIN [Concomitant]
     Active Substance: THYMALFASIN
     Indication: Prophylaxis
     Route: 058
     Dates: start: 20240122, end: 20240122
  181. THYMALFASIN [Concomitant]
     Active Substance: THYMALFASIN
     Route: 058
     Dates: start: 20240130, end: 20240130

REACTIONS (49)
  - Neutrophil count decreased [Recovered/Resolved]
  - Neutrophil count decreased [Recovered/Resolved]
  - Neutrophil count decreased [Recovered/Resolved]
  - White blood cell count decreased [Recovered/Resolved]
  - White blood cell count decreased [Recovered/Resolved]
  - White blood cell count decreased [Recovered/Resolved]
  - White blood cell count decreased [Recovered/Resolved]
  - White blood cell count decreased [Recovered/Resolved]
  - Neutrophil count decreased [Recovered/Resolved]
  - Neutrophil count decreased [Recovered/Resolved]
  - Neutrophil count decreased [Recovered/Resolved]
  - Platelet count decreased [Recovered/Resolved]
  - Platelet count decreased [Recovered/Resolved]
  - Neutrophil count decreased [Recovered/Resolved]
  - Neutrophil count decreased [Recovered/Resolved]
  - Platelet count decreased [Recovered/Resolved]
  - Platelet count decreased [Recovered/Resolved]
  - Anaemia [Recovered/Resolved]
  - Anaemia [Recovered/Resolved]
  - Anaemia [Recovered/Resolved]
  - Anaemia [Recovered/Resolved]
  - White blood cell count decreased [Recovered/Resolved]
  - Chest discomfort [Recovered/Resolved]
  - White blood cell count decreased [Recovered/Resolved]
  - Neutrophil count decreased [Recovered/Resolved]
  - Anaemia [Recovered/Resolved]
  - Platelet count decreased [Recovered/Resolved]
  - Platelet count decreased [Recovered/Resolved]
  - White blood cell count decreased [Recovered/Resolved]
  - White blood cell count decreased [Recovered/Resolved]
  - Platelet count decreased [Recovered/Resolved]
  - Hepatic function abnormal [Recovered/Resolved]
  - White blood cell count decreased [Recovered/Resolved]
  - Neutrophil count decreased [Recovered/Resolved]
  - Platelet count decreased [Recovered/Resolved]
  - White blood cell count decreased [Recovered/Resolved]
  - Platelet count decreased [Recovered/Resolved]
  - White blood cell count decreased [Recovered/Resolved]
  - Platelet count decreased [Recovered/Resolved]
  - Hypoproteinaemia [Recovered/Resolved]
  - Arteriosclerosis coronary artery [Not Recovered/Not Resolved]
  - Hypocalcaemia [Recovered/Resolved]
  - Hypoproteinaemia [Recovered/Resolved]
  - Hypoproteinaemia [Not Recovered/Not Resolved]
  - White blood cell count decreased [Recovered/Resolved]
  - White blood cell count decreased [Recovered/Resolved]
  - Neutrophil count decreased [Recovered/Resolved]
  - Platelet count decreased [Recovered/Resolved]
  - Ventricular extrasystoles [Recovered/Resolved]

NARRATIVE: CASE EVENT DATE: 20230324
